FAERS Safety Report 19729301 (Version 2)
Quarter: 2021Q3

REPORT INFORMATION
  Report Type: Report from Study
  Country: TH (occurrence: TH)
  Receive Date: 20210820
  Receipt Date: 20210827
  Transmission Date: 20211014
  Serious: Yes (Other)
  Sender: FDA-Public Use
  Company Number: NVSC2021TH163764

PATIENT
  Age: 65 Year
  Sex: Female
  Weight: 56.05 kg

DRUGS (6)
  1. INC280 [Suspect]
     Active Substance: CAPMATINIB
     Dosage: 150 MG, BID(2 TABLET)
     Route: 065
  2. INC280 [Suspect]
     Active Substance: CAPMATINIB
     Dosage: 600 MG (150 MG TABLET)
     Route: 048
     Dates: end: 20210727
  3. MICARDIS [Concomitant]
     Active Substance: TELMISARTAN
     Dosage: UNK (1/2 TAB PER DAY)
     Route: 065
     Dates: start: 20210719
  4. INC280 [Suspect]
     Active Substance: CAPMATINIB
     Indication: NON-SMALL CELL LUNG CANCER
     Dosage: 800 MG
     Route: 048
     Dates: start: 20210628, end: 20210712
  5. INC280 [Suspect]
     Active Substance: CAPMATINIB
     Dosage: 200 MG, BID(2TABLET)
     Route: 065
  6. MICARDIS [Concomitant]
     Active Substance: TELMISARTAN
     Indication: PRODUCT USED FOR UNKNOWN INDICATION
     Dosage: 20 MG, QD
     Route: 065

REACTIONS (4)
  - Fatigue [Not Recovered/Not Resolved]
  - Malignant neoplasm progression [Unknown]
  - Blood creatinine increased [Recovering/Resolving]
  - Non-small cell lung cancer [Unknown]

NARRATIVE: CASE EVENT DATE: 20210706
